FAERS Safety Report 6187931-X (Version None)
Quarter: 2009Q2

REPORT INFORMATION
  Report Type: 
  Country: None (occurrence: None)
  Receive Date: 20090511
  Receipt Date: 20090511
  Transmission Date: 20091009
  Serious: Yes (Other)
  Sender: FDA-Public Use
  Company Number: None

PATIENT
  Age: 45 Year
  Sex: Male
  Weight: 90.7194 kg

DRUGS (1)
  1. CAPZASIN NO-MESS APPLICATOR CAPSAICIN 0.15% CHATTEM LABS [Suspect]
     Indication: BACK PAIN
     Dosage: APPLY TO BACK 1 X DAY CUTANEOUS
     Route: 003
     Dates: start: 20090315, end: 20090503

REACTIONS (6)
  - ACCIDENTAL EXPOSURE [None]
  - AIR-BORNE TRANSMISSION [None]
  - COUGH [None]
  - LACRIMATION INCREASED [None]
  - MALAISE [None]
  - SNEEZING [None]
